FAERS Safety Report 9847026 (Version 1)
Quarter: 2014Q1

REPORT INFORMATION
  Report Type: Spontaneous
  Country: DK (occurrence: DK)
  Receive Date: 20140127
  Receipt Date: 20140127
  Transmission Date: 20141002
  Serious: Yes (Other)
  Sender: FDA-Public Use
  Company Number: DK-INCYTE CORPORATION-2013IN003150

PATIENT
  Age: 55 Year
  Sex: Female

DRUGS (5)
  1. JAKAVI [Suspect]
     Dosage: 20 MG, BID
     Route: 065
  2. JAKAVI [Suspect]
     Dosage: 45 UG, EVERY SECOND WEEK
     Route: 065
  3. CLOPIDOGREL [Concomitant]
  4. ANAGRELIDE [Concomitant]
  5. PEGASYS [Concomitant]

REACTIONS (2)
  - Transient ischaemic attack [Unknown]
  - Platelet count increased [Unknown]
